FAERS Safety Report 19866905 (Version 1)
Quarter: 2021Q3

REPORT INFORMATION
  Report Type: Spontaneous
  Country: US (occurrence: US)
  Receive Date: 20210921
  Receipt Date: 20210921
  Transmission Date: 20211014
  Serious: No
  Sender: FDA-Public Use
  Company Number: US-BRAINTREE LABORATORIES, INC.-2021BTE00133

PATIENT
  Age: 59 Year
  Sex: Male
  Weight: 78.02 kg

DRUGS (6)
  1. RASAGILINE. [Concomitant]
     Active Substance: RASAGILINE
  2. NOURIANZ [Concomitant]
     Active Substance: ISTRADEFYLLINE
  3. ENTACAPONE. [Concomitant]
     Active Substance: ENTACAPONE
  4. SUPREP BOWEL PREP [Suspect]
     Active Substance: MAGNESIUM SULFATE\POTASSIUM SULFATE\SODIUM SULFATE
     Indication: COLONOSCOPY
     Dosage: 2 X 6 OZ. BOTTLE, 1X
     Route: 048
     Dates: start: 20210224, end: 20210224
  5. CARBIDOPA. [Concomitant]
     Active Substance: CARBIDOPA
  6. CLONAZEPAM. [Concomitant]
     Active Substance: CLONAZEPAM

REACTIONS (2)
  - Wrong technique in product usage process [Recovered/Resolved]
  - Abdominal pain upper [Not Recovered/Not Resolved]

NARRATIVE: CASE EVENT DATE: 20210224
